FAERS Safety Report 16635392 (Version 1)
Quarter: 2019Q3

REPORT INFORMATION
  Report Type: Spontaneous
  Country: US (occurrence: US)
  Receive Date: 20190726
  Receipt Date: 20190726
  Transmission Date: 20191004
  Serious: No
  Sender: FDA-Public Use
  Company Number: US-ASTRAZENECA-2019SF06438

PATIENT
  Age: 82 Year
  Sex: Male

DRUGS (2)
  1. ACALABRUTINIB. [Suspect]
     Active Substance: ACALABRUTINIB
     Indication: CHRONIC LYMPHOCYTIC LEUKAEMIA
     Route: 048
  2. GAZYVA OBINUTUZUMAB [Concomitant]

REACTIONS (2)
  - Product use issue [Unknown]
  - Neutropenia [Unknown]
